FAERS Safety Report 6390168-2 (Version None)
Quarter: 2009Q4

REPORT INFORMATION
  Report Type: 
  Country: None (occurrence: None)
  Receive Date: 20091006
  Receipt Date: 20091005
  Transmission Date: 20100525
  Serious: Yes (Hospitalization)
  Sender: FDA-Public Use
  Company Number: US-ABBOTT-09P-163-0599003-00

PATIENT
  Sex: Female
  Weight: 65.376 kg

DRUGS (18)
  1. ZEMPLAR [Suspect]
     Indication: RENAL FAILURE CHRONIC
     Route: 048
     Dates: start: 20080101
  2. CRESTOR [Concomitant]
     Indication: BLOOD CHOLESTEROL INCREASED
     Route: 048
  3. DEMADEX [Concomitant]
     Indication: FLUID RETENTION
     Route: 048
  4. DEMADEX [Concomitant]
     Indication: CARDIAC FAILURE CONGESTIVE
  5. IMDUR [Concomitant]
     Indication: CARDIAC FAILURE CONGESTIVE
     Route: 048
  6. PREDNISONE [Concomitant]
     Indication: POLYMYALGIA RHEUMATICA
     Route: 048
  7. COREG [Concomitant]
     Indication: HYPERTENSION
     Route: 048
     Dates: end: 20090902
  8. NITROGLYCERIN [Concomitant]
     Indication: CARDIAC FAILURE CONGESTIVE
     Route: 060
  9. ASPIRIN [Concomitant]
     Indication: THROMBOSIS PROPHYLAXIS
     Route: 048
  10. CALCIUM W/VITAMIN D [Concomitant]
     Indication: MINERAL SUPPLEMENTATION
     Route: 048
  11. DOCUSATE [Concomitant]
     Indication: CONSTIPATION
     Route: 048
  12. FERROUS SULFATE TAB [Concomitant]
     Indication: ANAEMIA
     Route: 048
  13. MULTI-VITAMIN [Concomitant]
     Indication: VITAMIN SUPPLEMENTATION
     Route: 048
  14. NEXIUM [Concomitant]
     Indication: GASTROINTESTINAL ULCER
     Route: 048
  15. MULTIVITAMIN [Concomitant]
     Indication: VITAMIN SUPPLEMENTATION
     Route: 048
  16. TYLENOL (CAPLET) [Concomitant]
     Indication: DRUG USE FOR UNKNOWN INDICATION
     Route: 048
  17. MIRALAX [Concomitant]
     Indication: CONSTIPATION
     Route: 048
  18. HEMORRHOIDAL HC [Concomitant]
     Indication: CONSTIPATION
     Route: 054

REACTIONS (6)
  - DYSPNOEA [None]
  - EXCORIATION [None]
  - FALL [None]
  - INFLUENZA [None]
  - PYREXIA [None]
  - WHEEZING [None]
